FAERS Safety Report 10550458 (Version 1)
Quarter: 2014Q4

REPORT INFORMATION
  Report Type: Spontaneous
  Country: US (occurrence: US)
  Receive Date: 20141029
  Receipt Date: 20141029
  Transmission Date: 20150529
  Serious: No
  Sender: FDA-Public Use
  Company Number: US-TEVA-476594USA

PATIENT
  Age: 26 Year
  Sex: Male
  Weight: 93.98 kg

DRUGS (1)
  1. PROVIGIL [Suspect]
     Active Substance: MODAFINIL
     Indication: SLEEP APNOEA SYNDROME
     Route: 048
     Dates: start: 20140409

REACTIONS (5)
  - Bradyphrenia [Unknown]
  - Somnolence [Unknown]
  - Drug effect decreased [Unknown]
  - Impatience [Unknown]
  - Anxiety [Unknown]

NARRATIVE: CASE EVENT DATE: 20140412
